FAERS Safety Report 4464676-5 (Version None)
Quarter: 2004Q3

REPORT INFORMATION
  Report Type: 
  Country: None (occurrence: None)
  Receive Date: 20040929
  Receipt Date: 20040909
  Transmission Date: 20050211
  Serious: Yes (Hospitalization)
  Sender: FDA-Public Use
  Company Number: USA030433018

PATIENT
  Age: 79 Year
  Sex: Female
  Weight: 48 kg

DRUGS (6)
  1. FORTEO [Suspect]
     Indication: OSTEOPOROSIS
     Dosage: 20 UG/DAY
     Dates: start: 20030316
  2. DEPROL [Concomitant]
  3. ATENOLOL [Concomitant]
  4. PRINIVIL [Concomitant]
  5. PROCRIT [Concomitant]
  6. ACTONEL [Concomitant]

REACTIONS (8)
  - ASTHENIA [None]
  - BODY HEIGHT DECREASED [None]
  - CHEST PAIN [None]
  - FEELING ABNORMAL [None]
  - MEDICAL DEVICE COMPLICATION [None]
  - PHARMACEUTICAL PRODUCT COMPLAINT [None]
  - RASH [None]
  - RED BLOOD CELL COUNT DECREASED [None]
